FAERS Safety Report 14859769 (Version 1)
Quarter: 2018Q2

REPORT INFORMATION
  Report Type: Spontaneous
  Country: US (occurrence: US)
  Receive Date: 20180508
  Receipt Date: 20180508
  Transmission Date: 20180711
  Serious: No
  Sender: FDA-Public Use
  Company Number: US-PFIZER INC-2018186098

PATIENT
  Age: 63 Year
  Sex: Female

DRUGS (1)
  1. XELJANZ [Suspect]
     Active Substance: TOFACITINIB CITRATE
     Dosage: 5 MG, 2X/DAY (FOR 90 DAYS)
     Route: 048

REACTIONS (5)
  - Anaemia [Unknown]
  - Vasodilatation [Unknown]
  - Skin hyperpigmentation [Unknown]
  - Onycholysis [Unknown]
  - Rash erythematous [Unknown]
